FAERS Safety Report 9342479 (Version 1)
Quarter: 2013Q2

REPORT INFORMATION
  Report Type: Spontaneous
  Country: AU (occurrence: GB)
  Receive Date: 20130611
  Receipt Date: 20130611
  Transmission Date: 20140414
  Serious: Yes (Hospitalization, Other)
  Sender: FDA-Public Use
  Company Number: AU-BAYER-2013-068526

PATIENT
  Age: 16 Year
  Sex: Female

DRUGS (13)
  1. CIPROFLOXACIN [Suspect]
     Indication: MYCOBACTERIUM ABSCESSUS INFECTION
     Route: 048
  2. CIPROFLOXACIN [Suspect]
     Indication: ANTIBIOTIC PROPHYLAXIS
  3. CLARITHROMYCIN [Suspect]
     Indication: MYCOBACTERIUM ABSCESSUS INFECTION
     Route: 048
  4. CLARITHROMYCIN [Suspect]
     Indication: ANTIBIOTIC PROPHYLAXIS
  5. AMIKACIN [Suspect]
     Indication: MYCOBACTERIUM ABSCESSUS INFECTION
     Route: 055
  6. AMIKACIN [Suspect]
     Indication: ANTIBIOTIC PROPHYLAXIS
     Dosage: UNK
     Route: 042
  7. LINEZOLID [Suspect]
     Indication: ANTIBIOTIC PROPHYLAXIS
     Route: 048
  8. BASILIXIMAB [Concomitant]
     Indication: LUNG TRANSPLANT
  9. PREDNISOLONE [Concomitant]
     Indication: IMMUNOSUPPRESSANT DRUG THERAPY
  10. TACROLIMUS [Concomitant]
     Indication: IMMUNOSUPPRESSANT DRUG THERAPY
  11. MYCOPHENOLATE MOFETIL [Concomitant]
     Indication: IMMUNOSUPPRESSANT DRUG THERAPY
  12. TIGECYCLINE [Concomitant]
     Indication: ANTIBIOTIC THERAPY
     Dosage: UNK
     Route: 042
  13. CEFTAZIDIME [Concomitant]
     Indication: ANTIBIOTIC THERAPY

REACTIONS (6)
  - Deafness neurosensory [None]
  - Renal failure chronic [None]
  - Pleural effusion [None]
  - Renal failure acute [None]
  - Posterior reversible encephalopathy syndrome [None]
  - Paraspinal abscess [None]
